FAERS Safety Report 24354200 (Version 1)
Quarter: 2024Q3

REPORT INFORMATION
  Report Type: Report from Study
  Country: BE (occurrence: BE)
  Receive Date: 20240923
  Receipt Date: 20240923
  Transmission Date: 20241017
  Serious: Yes (Hospitalization)
  Sender: GLAXOSMITHKLINE
  Company Number: None

PATIENT

DRUGS (19)
  1. EPOPROSTENOL SODIUM [Suspect]
     Active Substance: EPOPROSTENOL SODIUM
     Indication: Pulmonary arterial hypertension
     Dosage: UNK UNK, QD (DAILY DOSE 2)
     Route: 042
     Dates: start: 20221227, end: 20221229
  2. EPOPROSTENOL SODIUM [Suspect]
     Active Substance: EPOPROSTENOL SODIUM
     Indication: Pulmonary arterial hypertension
     Dosage: UNK UNK, QD (DAILY DOSE 4)
     Route: 042
     Dates: start: 20221229, end: 20221230
  3. EPOPROSTENOL SODIUM [Suspect]
     Active Substance: EPOPROSTENOL SODIUM
     Dosage: UNK UNK, QD (DAILY DOSE 5)
     Route: 042
     Dates: start: 20221230, end: 20230104
  4. EPOPROSTENOL SODIUM [Suspect]
     Active Substance: EPOPROSTENOL SODIUM
     Dosage: UNK UNK, QD (DAILY DOSE 8)
     Route: 042
     Dates: start: 20230104, end: 20230118
  5. EPOPROSTENOL SODIUM [Suspect]
     Active Substance: EPOPROSTENOL SODIUM
     Dosage: UNK UNK, QD  (DAILY DOSE 8.5)
     Route: 042
     Dates: start: 20230125, end: 20230416
  6. EPOPROSTENOL SODIUM [Suspect]
     Active Substance: EPOPROSTENOL SODIUM
     Dosage: UNK UNK, QD (DAILY DOSE 9)
     Route: 042
     Dates: start: 20230118, end: 20230125
  7. EPOPROSTENOL SODIUM [Suspect]
     Active Substance: EPOPROSTENOL SODIUM
     Dosage: UNK UNK, QD (DAILY DOSE 9)
     Route: 042
     Dates: start: 20230416, end: 20230426
  8. EPOPROSTENOL SODIUM [Suspect]
     Active Substance: EPOPROSTENOL SODIUM
     Dosage: UNK UNK, QD (DAILY DOSE 9.5)
     Route: 042
     Dates: start: 20230426, end: 20230502
  9. EPOPROSTENOL SODIUM [Suspect]
     Active Substance: EPOPROSTENOL SODIUM
     Dosage: UNK UNK, QD (DAILY DOSE 9.5)
     Route: 042
     Dates: start: 20230426, end: 20230502
  10. EPOPROSTENOL SODIUM [Suspect]
     Active Substance: EPOPROSTENOL SODIUM
     Dosage: UNK UNK, QD (DAILY DOSE 10)
     Route: 042
     Dates: start: 20230502, end: 20230523
  11. EPOPROSTENOL SODIUM [Suspect]
     Active Substance: EPOPROSTENOL SODIUM
     Dosage: UNK UNK, QD (DAILY DOSE 10.5)
     Route: 042
     Dates: start: 20230523, end: 20230613
  12. EPOPROSTENOL SODIUM [Suspect]
     Active Substance: EPOPROSTENOL SODIUM
     Dosage: UNK UNK, QD (DAILY DOSE 11)
     Route: 042
     Dates: start: 20230613, end: 20230627
  13. EPOPROSTENOL SODIUM [Suspect]
     Active Substance: EPOPROSTENOL SODIUM
     Dosage: UNK UNK, QD  (DAILY DOSE 10.5)
     Route: 042
     Dates: start: 20230627
  14. MACITENTAN [Suspect]
     Active Substance: MACITENTAN
     Indication: Pulmonary arterial hypertension
     Dosage: 10 MG
     Route: 048
     Dates: start: 20221230
  15. ADEMPAS [Concomitant]
     Active Substance: RIOCIGUAT
     Indication: Pulmonary arterial hypertension
     Dosage: UNK UNK, QD (DAILY DOSE 3)
     Route: 048
     Dates: start: 20230215, end: 20230228
  16. ADEMPAS [Concomitant]
     Active Substance: RIOCIGUAT
     Indication: Pulmonary arterial hypertension
     Dosage: UNK UNK, QD (DAILY DOSE 4.5)
     Route: 048
     Dates: start: 20230228, end: 20230315
  17. ADEMPAS [Concomitant]
     Active Substance: RIOCIGUAT
     Dosage: UNK UNK, QD (DAILY DOSE 6)
     Route: 048
     Dates: start: 20230315, end: 20230328
  18. ADEMPAS [Concomitant]
     Active Substance: RIOCIGUAT
     Dosage: UNK UNK, QD (DAILY DOSE 7.5)
     Route: 048
     Dates: start: 20230328
  19. ADCIRCA [Concomitant]
     Active Substance: TADALAFIL
     Indication: Pulmonary arterial hypertension
     Dosage: UNK (20 DOSE)
     Route: 048
     Dates: start: 20230201, end: 20230206

REACTIONS (3)
  - Device occlusion [Recovered/Resolved]
  - Underdose [Unknown]
  - Medication error [Unknown]

NARRATIVE: CASE EVENT DATE: 20240823
